FAERS Safety Report 14595827 (Version 1)
Quarter: 2018Q1

REPORT INFORMATION
  Report Type: Spontaneous
  Country: US (occurrence: US)
  Receive Date: 20180303
  Receipt Date: 20180303
  Transmission Date: 20180509
  Serious: No
  Sender: FDA-Public Use
  Company Number: US-009507513-1802USA009163

PATIENT
  Age: 47 Year
  Sex: Female
  Weight: 78.01 kg

DRUGS (3)
  1. NEXPLANON [Suspect]
     Active Substance: ETONOGESTREL
     Dosage: 68 MG (1 IMPLANT) EVERY 3 YEARS
     Route: 059
     Dates: end: 20180215
  2. NEXPLANON [Suspect]
     Active Substance: ETONOGESTREL
     Dosage: 68 MG (1 IMPLANT) EVERY 3 YEARS
     Route: 059
     Dates: start: 20180215
  3. NEXPLANON [Suspect]
     Active Substance: ETONOGESTREL
     Dosage: 68 MG (1 IMPLANT) EVERY 3 YEARS
     Route: 059
     Dates: start: 20180215

REACTIONS (1)
  - Complication of device insertion [Recovered/Resolved]
